FAERS Safety Report 9292369 (Version 1)
Quarter: 2013Q2

REPORT INFORMATION
  Report Type: Report from Study
  Country: US (occurrence: US)
  Receive Date: 20130516
  Receipt Date: 20130516
  Transmission Date: 20140414
  Serious: Yes (Other)
  Sender: FDA-Public Use
  Company Number: US-MYLANLABS-2013S1010028

PATIENT
  Sex: Male

DRUGS (1)
  1. AMNESTEEM CAPSULES [Suspect]

REACTIONS (1)
  - Exposure via body fluid [Not Recovered/Not Resolved]
